FAERS Safety Report 16491602 (Version 1)
Quarter: 2019Q2

REPORT INFORMATION
  Report Type: Report from Study
  Country: US (occurrence: US)
  Receive Date: 20190628
  Receipt Date: 20190628
  Transmission Date: 20190711
  Serious: Yes (Hospitalization, Other)
  Sender: FDA-Public Use
  Company Number: US-HORIZON-KRY-0441-2019

PATIENT
  Age: 39 Year
  Sex: Male

DRUGS (1)
  1. KRYSTEXXA [Suspect]
     Active Substance: PEGLOTICASE
     Indication: GOUT
     Dosage: 8 MG IV Q2WEEKS
     Route: 042
     Dates: start: 20190522, end: 20190618

REACTIONS (5)
  - Balance disorder [Unknown]
  - Urticaria [Unknown]
  - Pneumonia [Unknown]
  - Tunnel vision [Unknown]
  - Atrial fibrillation [Unknown]

NARRATIVE: CASE EVENT DATE: 201906
